FAERS Safety Report 17262270 (Version 1)
Quarter: 2020Q1

REPORT INFORMATION
  Report Type: Spontaneous
  Country: US (occurrence: US)
  Receive Date: 20200110
  Receipt Date: 20200110
  Transmission Date: 20200409
  Serious: Yes (Hospitalization, Other)
  Sender: FDA-Public Use
  Company Number: None

PATIENT
  Age: 87 Year
  Sex: Male

DRUGS (8)
  1. DIGOXIN. [Concomitant]
     Active Substance: DIGOXIN
  2. TRAMADOL. [Concomitant]
     Active Substance: TRAMADOL
  3. HYDROCO/APAP [Concomitant]
     Active Substance: ACETAMINOPHEN\HYDROCODONE
  4. XELJANZ XR [Suspect]
     Active Substance: TOFACITINIB CITRATE
     Indication: RHEUMATOID ARTHRITIS
     Route: 048
     Dates: start: 20190226
  5. METHOTREXATE. [Concomitant]
     Active Substance: METHOTREXATE
  6. PREDNISONE. [Concomitant]
     Active Substance: PREDNISONE
  7. DONEPEZIL. [Concomitant]
     Active Substance: DONEPEZIL
  8. BENZONATATE. [Concomitant]
     Active Substance: BENZONATATE

REACTIONS (3)
  - Diarrhoea [None]
  - Pneumonia [None]
  - Influenza [None]
